FAERS Safety Report 5614720-4 (Version None)
Quarter: 2008Q1

REPORT INFORMATION
  Report Type: 
  Country: None (occurrence: None)
  Receive Date: 20080131
  Receipt Date: 20080124
  Transmission Date: 20080703
  Serious: Yes (Other)
  Sender: FDA-Public Use
  Company Number: 2008-00444

PATIENT
  Age: 80 Year
  Sex: Female

DRUGS (3)
  1. FERRLECIT [Suspect]
     Indication: ANAEMIA OF CHRONIC DISEASE
     Dosage: 250 MG IN 250ML NS, SINGLE, INTRAVENOUS
     Route: 042
  2. FERRLECIT [Suspect]
     Indication: IRON DEFICIENCY ANAEMIA
     Dosage: 250 MG IN 250ML NS, SINGLE, INTRAVENOUS
     Route: 042
  3. FERRLECIT [Suspect]
     Indication: RENAL DISORDER
     Dosage: 250 MG IN 250ML NS, SINGLE, INTRAVENOUS
     Route: 042

REACTIONS (6)
  - CONVULSION [None]
  - FAECAL INCONTINENCE [None]
  - HYPOTENSION [None]
  - LOSS OF CONSCIOUSNESS [None]
  - MALAISE [None]
  - MUSCLE TWITCHING [None]
